FAERS Safety Report 9484332 (Version 1)
Quarter: 2013Q3

REPORT INFORMATION
  Report Type: Spontaneous
  Country: US (occurrence: US)
  Receive Date: 20130828
  Receipt Date: 20130828
  Transmission Date: 20140515
  Serious: Yes (Hospitalization)
  Sender: FDA-Public Use
  Company Number: US-AMGEN-KDL409122

PATIENT
  Age: 61 Year
  Sex: Female

DRUGS (1)
  1. ENBREL [Suspect]
     Indication: PSORIASIS
     Dosage: 50 MG, QWK
     Route: 058

REACTIONS (7)
  - Renal failure [Not Recovered/Not Resolved]
  - Decubitus ulcer [Recovered/Resolved]
  - Hernia repair [Unknown]
  - Fall [Unknown]
  - Weight decreased [Unknown]
  - Infection [Unknown]
  - Psoriasis [Not Recovered/Not Resolved]
